FAERS Safety Report 12847606 (Version 1)
Quarter: 2016Q4

REPORT INFORMATION
  Report Type: Report from Study
  Country: CA (occurrence: CA)
  Receive Date: 20161014
  Receipt Date: 20161014
  Transmission Date: 20170207
  Serious: Yes (Other)
  Sender: FDA-Public Use
  Company Number: CA-TEVA-700316ACC

PATIENT
  Age: 33 Year
  Sex: Female

DRUGS (6)
  1. VITAMIN D [Concomitant]
     Active Substance: CHOLECALCIFEROL
  2. MAGNESIUM [Concomitant]
     Active Substance: MAGNESIUM
  3. COPAXONE [Suspect]
     Active Substance: GLATIRAMER ACETATE
     Indication: MULTIPLE SCLEROSIS
     Dosage: 20 MILLIGRAM/MILLILITERS DAILY;
     Route: 058
     Dates: start: 20150601
  4. CALCIUM [Concomitant]
     Active Substance: CALCIUM
  5. PROZAC [Concomitant]
     Active Substance: FLUOXETINE HYDROCHLORIDE
  6. MULTIVITAMIN [Concomitant]
     Active Substance: VITAMINS

REACTIONS (5)
  - Treatment noncompliance [Unknown]
  - Bronchitis [Unknown]
  - Asthma [Unknown]
  - Pancreatitis acute [Unknown]
  - Drug interaction [Unknown]

NARRATIVE: CASE EVENT DATE: 201606
